FAERS Safety Report 25369803 (Version 1)
Quarter: 2025Q2

REPORT INFORMATION
  Report Type: Spontaneous
  Country: US (occurrence: US)
  Receive Date: 20250528
  Receipt Date: 20250528
  Transmission Date: 20250717
  Serious: No
  Sender: Kenvue
  Company Number: US-KENVUE-20250506521

PATIENT
  Sex: Female

DRUGS (2)
  1. TYLENOL 8HR [Suspect]
     Active Substance: ACETAMINOPHEN
     Indication: Arthritis
     Dosage: 1 CAPLET, ONCE IN A WEEK
     Route: 065
     Dates: start: 2022
  2. TYLENOL 8HR [Suspect]
     Active Substance: ACETAMINOPHEN
     Dosage: 1 CAPLET, ONCE IN A WEEK
     Route: 065
     Dates: start: 2022

REACTIONS (1)
  - Off label use [Unknown]

NARRATIVE: CASE EVENT DATE: 20220101
